FAERS Safety Report 8573869-7 (Version None)
Quarter: 2012Q3

REPORT INFORMATION
  Report Type: 
  Country: None (occurrence: None)
  Receive Date: 20120806
  Receipt Date: 20120201
  Transmission Date: 20120928
  Serious: No
  Sender: FDA-Public Use
  Company Number: US-GLAXOSMITHKLINE-A0964213A

PATIENT
  Age: 50 Year
  Sex: Female

DRUGS (5)
  1. THYROID MEDICATION [Concomitant]
  2. NEXIUM [Concomitant]
  3. BLOOD PRESSURE MEDICATION [Concomitant]
  4. POTASSIUM [Concomitant]
  5. FLUTICASONE PROPIONATE [Suspect]
     Indication: DYSPNOEA
     Dosage: 2PUFF TWICE PER DAY
     Route: 055

REACTIONS (5)
  - CONSTIPATION [None]
  - DIARRHOEA [None]
  - ABNORMAL FAECES [None]
  - PRODUCT QUALITY ISSUE [None]
  - FOREIGN BODY [None]
